FAERS Safety Report 5836218-0 (Version None)
Quarter: 2008Q3

REPORT INFORMATION
  Report Type: 
  Country: None (occurrence: None)
  Receive Date: 20080805
  Receipt Date: 20080725
  Transmission Date: 20090109
  Serious: Yes (Other)
  Sender: FDA-Public Use
  Company Number: 2008S1013198

PATIENT
  Age: 69 Year
  Sex: Female

DRUGS (5)
  1. AMLODIPINE BESYLATE [Suspect]
     Indication: HYPERTENSION
     Dosage: 10 MG; X1; ORAL
     Route: 048
     Dates: start: 20080101, end: 20080101
  2. METOPROLOL SUCCINATE [Concomitant]
  3. LEVOTHXROXINE [Concomitant]
  4. METFORMIN HCL [Concomitant]
  5. BENICAR [Concomitant]

REACTIONS (3)
  - THERAPEUTIC RESPONSE UNEXPECTED WITH DRUG SUBSTITUTION [None]
  - THROAT IRRITATION [None]
  - THROAT TIGHTNESS [None]
